FAERS Safety Report 16928679 (Version 2)
Quarter: 2020Q1

REPORT INFORMATION
  Report Type: Spontaneous
  Country: CA (occurrence: CA)
  Receive Date: 20191017
  Receipt Date: 20200210
  Transmission Date: 20200409
  Serious: Yes (Death, Other)
  Sender: FDA-Public Use
  Company Number: CA-TEVA-2019-CA-1123244

PATIENT
  Sex: Female

DRUGS (2)
  1. ZOLEDRONIC ACID MONOHYDRATE [Suspect]
     Active Substance: ZOLEDRONIC ACID
     Indication: PRODUCT USED FOR UNKNOWN INDICATION
     Route: 065
  2. ZOLEDRONIC ACID MONOHYDRATE [Suspect]
     Active Substance: ZOLEDRONIC ACID
     Route: 051

REACTIONS (2)
  - Death [Fatal]
  - Lung disorder [Fatal]
